FAERS Safety Report 4292498-7 (Version None)
Quarter: 2004Q1

REPORT INFORMATION
  Report Type: 
  Country: None (occurrence: None)
  Receive Date: 20040126
  Receipt Date: 20030910
  Transmission Date: 20041129
  Serious: No
  Sender: FDA-Public Use
  Company Number: USA030946869

PATIENT
  Age: 74 Year
  Sex: Female

DRUGS (7)
  1. FORTEO [Suspect]
  2. OS-CAL [Concomitant]
  3. TAVIST [Concomitant]
  4. ALLERGY SHOT [Concomitant]
  5. LORAZEPAM [Concomitant]
  6. GLUCOSAMINE [Concomitant]
  7. CHONDROITIN SULFATE [Concomitant]

REACTIONS (4)
  - ASTHENIA [None]
  - DIZZINESS [None]
  - HYPERSENSITIVITY [None]
  - OEDEMA MOUTH [None]
